FAERS Safety Report 7486284-4 (Version None)
Quarter: 2011Q2

REPORT INFORMATION
  Report Type: 
  Country: None (occurrence: None)
  Receive Date: 20110517
  Receipt Date: 20110407
  Transmission Date: 20111010
  Serious: No
  Sender: FDA-Public Use
  Company Number: A0923030A

PATIENT
  Sex: Male

DRUGS (1)
  1. VOTRIENT [Suspect]
     Dosage: 800MGD PER DAY
     Route: 048
     Dates: start: 20110302

REACTIONS (1)
  - DIARRHOEA [None]
